FAERS Safety Report 8616173-0 (Version None)
Quarter: 2012Q3

REPORT INFORMATION
  Report Type: 
  Country: None (occurrence: None)
  Receive Date: 20120815
  Receipt Date: 20120815
  Transmission Date: 20120928
  Serious: Yes (Other)
  Sender: FDA-Public Use
  Company Number: None

PATIENT
  Age: 78 Year
  Sex: Male
  Weight: 111.1313 kg

DRUGS (1)
  1. PLAVIX [Suspect]
     Indication: CORONARY ARTERIAL STENT INSERTION
     Dosage: ONE TABLET DAILY PO
     Route: 048
     Dates: start: 20111101, end: 20120613

REACTIONS (5)
  - BACK PAIN [None]
  - EYE HAEMORRHAGE [None]
  - MYALGIA [None]
  - VISUAL IMPAIRMENT [None]
  - PAIN [None]
